FAERS Safety Report 23290019 (Version 1)
Quarter: 2023Q4

REPORT INFORMATION
  Report Type: Spontaneous
  Country: JP (occurrence: JP)
  Receive Date: 20231212
  Receipt Date: 20231212
  Transmission Date: 20240110
  Serious: Yes (Hospitalization, Other)
  Sender: FDA-Public Use
  Company Number: JP-BAXTER-2023BAX037468

PATIENT
  Sex: Male

DRUGS (1)
  1. REGUNEAL LCA [Suspect]
     Active Substance: CALCIUM CHLORIDE\DEXTROSE MONOHYDRATE\HYDROCHLORIC ACID\MAGNESIUM CHLORIDE\SODIUM BICARBONATE\SODIUM
     Dosage: UNK
     Route: 033
     Dates: start: 202103

REACTIONS (2)
  - Cardiac failure [Unknown]
  - Coronavirus infection [Unknown]

NARRATIVE: CASE EVENT DATE: 20231204
